FAERS Safety Report 23034975 (Version 1)
Quarter: 2023Q4

REPORT INFORMATION
  Report Type: Spontaneous
  Country: PT (occurrence: PT)
  Receive Date: 20231005
  Receipt Date: 20231005
  Transmission Date: 20240110
  Serious: Yes (Other)
  Sender: FDA-Public Use
  Company Number: None

PATIENT
  Age: 42 Year
  Sex: Male
  Weight: 79 kg

DRUGS (1)
  1. OPTIRAY 350 [Suspect]
     Active Substance: IOVERSOL
     Indication: Diagnostic procedure
     Dosage: SINGLE ADMINISTRATION.
     Route: 042

REACTIONS (1)
  - Papule [Recovered/Resolved]

NARRATIVE: CASE EVENT DATE: 20230907
